FAERS Safety Report 8154148 (Version 2)
Quarter: 2013Q2

REPORT INFORMATION
  Report Type: Spontaneous
  Country: US (occurrence: US)
  Receive Date: 20110923
  Receipt Date: 20130625
  Transmission Date: 20140414
  Serious: Yes (Hospitalization)
  Sender: FDA-Public Use
  Company Number: US-PFIZER INC-2011220037

PATIENT
  Age: 37 Year
  Sex: Female

DRUGS (5)
  1. AMLODIPINE BESILATE [Suspect]
  2. TRAMADOL HYDROCHLORIDE [Suspect]
  3. LOXAPINE [Suspect]
  4. CARBAMAZEPINE [Suspect]
  5. WARFARIN [Suspect]

REACTIONS (2)
  - Overdose [Unknown]
  - Cardiogenic shock [Unknown]
